FAERS Safety Report 24399097 (Version 3)
Quarter: 2025Q3

REPORT INFORMATION
  Report Type: Report from Study
  Country: JP (occurrence: JP)
  Receive Date: 20241004
  Receipt Date: 20250930
  Transmission Date: 20251020
  Serious: Yes (Hospitalization)
  Sender: BAUSCH AND LOMB
  Company Number: JP-BAUSCH-BL-2024-010041

PATIENT
  Age: 1 Year
  Sex: Male

DRUGS (14)
  1. RIFAXIMIN [Suspect]
     Active Substance: RIFAXIMIN
     Indication: Hyperammonaemia
     Route: 048
     Dates: start: 20240424
  2. PHENOBARBITAL [Concomitant]
     Active Substance: PHENOBARBITAL
     Indication: Cholestasis
     Dosage: 18 MILLIGRAM(S), IN 1 DAY
     Route: 048
     Dates: start: 20230809
  3. URSODIOL [Concomitant]
     Active Substance: URSODIOL
     Indication: Cholestasis
     Dosage: 80 MILLIGRAM(S), IN 1 DAY
     Route: 048
     Dates: start: 20230707
  4. UNSPECIFIED INGREDIENT [Concomitant]
     Active Substance: UNSPECIFIED INGREDIENT
     Indication: Hepatic failure
     Dosage: 50 GRAM(S), IN 1 DAY
     Route: 048
     Dates: start: 20230522
  5. LACTULOSE [Concomitant]
     Active Substance: LACTULOSE
     Indication: Product used for unknown indication
     Dosage: 9 MILLILITRE(S), IN 1 DAY
     Route: 048
     Dates: start: 20230521
  6. MIYA-BM [Concomitant]
     Active Substance: CLOSTRIDIUM BUTYRICUM SPORES STRAIN M-55
     Indication: Diarrhoea
     Dosage: 0.5 GRAM(S), IN 1 DAY
     Route: 048
     Dates: start: 20230701
  7. ZINC ACETATE HYDRATE [Concomitant]
     Indication: Malnutrition
     Dosage: 10 MILLIGRAM(S), IN 1 DAY
     Route: 048
     Dates: start: 20231001
  8. .ALPHA.-TOCOPHEROL ACETATE [Concomitant]
     Active Substance: .ALPHA.-TOCOPHEROL ACETATE
     Indication: Malnutrition
     Dosage: 100 MILLIGRAM(S), IN 1 DAY
     Route: 048
     Dates: start: 20231001
  9. FAMOTIDINE [Concomitant]
     Active Substance: FAMOTIDINE
     Indication: Gastric ulcer
     Dosage: FAMOTIDINE OD, 5 MILLIGRAM(S), IN 1 DAY
     Route: 048
     Dates: start: 20231001
  10. FERRIC PYROPHOSPHATE [Concomitant]
     Active Substance: FERRIC PYROPHOSPHATE
     Indication: Anaemia
     Dosage: 7 MILLILITRE(S), IN 1 DAY
     Route: 048
     Dates: start: 20230713
  11. LEVOCARNITINE FF [Concomitant]
     Indication: Malnutrition
     Dosage: 3 MILLILITRE(S), IN 1 DAY
     Route: 048
     Dates: start: 20230706
  12. MENATETRENONE [Concomitant]
     Active Substance: MENATETRENONE
     Indication: Hypocoagulable state
     Dosage: 3 MILLILITRE(S), IN 1 DAY
     Route: 048
     Dates: start: 20240126
  13. SULFAMETHOXAZOLE\TRIMETHOPRIM [Concomitant]
     Active Substance: SULFAMETHOXAZOLE\TRIMETHOPRIM
     Indication: Infection prophylaxis
     Dosage: 0.4 GRAM(S), IN 1 DAY
     Route: 048
     Dates: start: 20231107
  14. ALFAROL [Concomitant]
     Active Substance: ALFACALCIDOL
     Indication: Nutritional supplementation
     Dosage: 1.5 MILLILITRE(S), IN 1 DAY
     Route: 048
     Dates: start: 20230707

REACTIONS (1)
  - Ileus paralytic [Recovering/Resolving]

NARRATIVE: CASE EVENT DATE: 20240625
